FAERS Safety Report 4948820-9 (Version None)
Quarter: 2006Q1

REPORT INFORMATION
  Report Type: 
  Country: None (occurrence: None)
  Receive Date: 20060315
  Receipt Date: 20060301
  Transmission Date: 20060701
  Serious: Yes (Hospitalization)
  Sender: FDA-Public Use
  Company Number: GXKR2006US01231

PATIENT
  Age: 52 Year
  Sex: Male

DRUGS (8)
  1. HALOPERIDOL DECANOATE [Suspect]
     Dosage: 100 MG, EVERY 12 DAYS, INTRAMUSCULAR
     Route: 030
  2. CLONAZEPAM [Suspect]
     Dosage: 0.5 MG, QHS, ORAL
     Route: 048
  3. QUETIAPINE FUMARATE [Suspect]
     Dosage: 500 MG, QHS, ORAL
     Route: 048
  4. BENZTROPINE MESYLATE [Suspect]
     Dosage: 1 MG, BID, ORAL
     Route: 048
  5. OLANZAPINE [Suspect]
  6. ENALAPRIL MALEATE [Concomitant]
  7. MULTIVITAMINS (ASCORBIC ACID, ERGOCALCIFEROL, FOLIC ACID, NICOTINAMIDE [Concomitant]
  8. FOLIC ACID [Concomitant]

REACTIONS (4)
  - AGITATION [None]
  - JOINT INSTABILITY [None]
  - PARKINSONISM [None]
  - TREATMENT NONCOMPLIANCE [None]
